FAERS Safety Report 7033556-3 (Version None)
Quarter: 2010Q4

REPORT INFORMATION
  Report Type: 
  Country: None (occurrence: None)
  Receive Date: 20101007
  Receipt Date: 20100924
  Transmission Date: 20110411
  Serious: Yes (Disabling, Other)
  Sender: FDA-Public Use
  Company Number: PHHY2010US63841

PATIENT
  Sex: Female
  Weight: 56.236 kg

DRUGS (8)
  1. ZOMETA [Suspect]
     Indication: BONE CANCER METASTATIC
     Dosage: 4 MG EVERY 4 WEEKS
     Route: 042
     Dates: start: 20060206, end: 20091101
  2. TAXOTERE [Concomitant]
  3. HERCEPTIN [Concomitant]
  4. XELODA [Concomitant]
  5. GEMZAR [Concomitant]
  6. AVASTIN [Concomitant]
  7. IXEMPRA KIT [Concomitant]
  8. TYKERB [Concomitant]

REACTIONS (2)
  - BONE DISORDER [None]
  - OSTEONECROSIS OF JAW [None]
